FAERS Safety Report 9703762 (Version 2)
Quarter: 2013Q4

REPORT INFORMATION
  Report Type: Spontaneous
  Country: US (occurrence: US)
  Receive Date: 20131122
  Receipt Date: 20131202
  Transmission Date: 20140711
  Serious: Yes (Death, Hospitalization)
  Sender: FDA-Public Use
  Company Number: US-JNJFOC-20131112443

PATIENT
  Age: 74 Year
  Sex: Male

DRUGS (3)
  1. INFLIXIMAB, RECOMBINANT [Suspect]
     Indication: COLITIS ULCERATIVE
     Route: 042
  2. BACTRIM [Suspect]
     Indication: COLITIS ULCERATIVE
     Route: 065
  3. IPILIMUMAB [Suspect]
     Indication: COLITIS ULCERATIVE
     Route: 065

REACTIONS (3)
  - Toxic epidermal necrolysis [Fatal]
  - Sepsis [Fatal]
  - Diarrhoea [Unknown]
